FAERS Safety Report 10445073 (Version 1)
Quarter: 2014Q3

REPORT INFORMATION
  Report Type: Report from Study
  Country: CA (occurrence: CA)
  Receive Date: 20140910
  Receipt Date: 20140910
  Transmission Date: 20150326
  Serious: Yes (Other)
  Sender: FDA-Public Use
  Company Number: CA-JNJFOC-20140904196

PATIENT
  Sex: Male
  Weight: 47.63 kg

DRUGS (1)
  1. REMICADE [Suspect]
     Active Substance: INFLIXIMAB
     Indication: CROHN^S DISEASE
     Route: 042
     Dates: start: 2011

REACTIONS (4)
  - Depression [Unknown]
  - Hypersomnia [Unknown]
  - Suicidal ideation [Unknown]
  - Oropharyngeal pain [Unknown]
